FAERS Safety Report 7806260-9 (Version None)
Quarter: 2011Q4

REPORT INFORMATION
  Report Type: 
  Country: None (occurrence: None)
  Receive Date: 20111011
  Receipt Date: 20110930
  Transmission Date: 20120403
  Serious: Yes (Other)
  Sender: FDA-Public Use
  Company Number: US-JNJFOC-20111000992

PATIENT
  Sex: Female
  Weight: 39.92 kg

DRUGS (1)
  1. REMICADE [Suspect]
     Indication: CROHN'S DISEASE
     Route: 042
     Dates: start: 20091201

REACTIONS (3)
  - WEIGHT INCREASED [None]
  - ALOPECIA [None]
  - HYPERTENSION [None]
